FAERS Safety Report 5380115-4 (Version None)
Quarter: 2007Q3

REPORT INFORMATION
  Report Type: 
  Country: None (occurrence: None)
  Receive Date: 20070706
  Receipt Date: 20070425
  Transmission Date: 20080115
  Serious: No
  Sender: FDA-Public Use
  Company Number: A0648729A

PATIENT
  Age: 74 Year
  Sex: Female

DRUGS (3)
  1. TYKERB [Suspect]
     Indication: BREAST CANCER
     Dosage: 250MG FIVE TIMES PER DAY
     Route: 048
     Dates: start: 20070421
  2. XELODA [Suspect]
     Dosage: 500MG EIGHT TIMES PER DAY
     Dates: start: 20070414
  3. LISINOPRIL [Concomitant]

REACTIONS (2)
  - DIARRHOEA [None]
  - PAIN IN EXTREMITY [None]
